FAERS Safety Report 6566241-2 (Version None)
Quarter: 2010Q1

REPORT INFORMATION
  Report Type: 
  Country: None (occurrence: None)
  Receive Date: 20100202
  Receipt Date: 20100127
  Transmission Date: 20100710
  Serious: Yes (Death, Hospitalization, Other)
  Sender: FDA-Public Use
  Company Number: US-BRISTOL-MYERS SQUIBB COMPANY-14261671

PATIENT
  Age: 31 Year
  Sex: Male
  Weight: 113 kg

DRUGS (1)
  1. ABILIFY [Suspect]
     Indication: BIPOLAR DISORDER
     Dates: start: 20050101, end: 20080101

REACTIONS (3)
  - CYST [None]
  - MYOCARDIAL INFARCTION [None]
  - WEIGHT INCREASED [None]
